FAERS Safety Report 10554541 (Version 1)
Quarter: 2014Q4

REPORT INFORMATION
  Report Type: Spontaneous
  Country: US (occurrence: US)
  Receive Date: 20141030
  Receipt Date: 20141030
  Transmission Date: 20150529
  Serious: Yes (Hospitalization)
  Sender: FDA-Public Use
  Company Number: US-ASTRAZENECA-2014SE80511

PATIENT
  Age: 29 Year
  Sex: Female
  Weight: 56.7 kg

DRUGS (2)
  1. SEROQUEL XR [Suspect]
     Active Substance: QUETIAPINE FUMARATE
     Indication: BIPOLAR DISORDER
     Route: 048
  2. DILTIAZEM [Suspect]
     Active Substance: DILTIAZEM
     Route: 048

REACTIONS (4)
  - Dystonia [Not Recovered/Not Resolved]
  - Fall [Not Recovered/Not Resolved]
  - Oromandibular dystonia [Not Recovered/Not Resolved]
  - Orthostatic hypotension [Not Recovered/Not Resolved]

NARRATIVE: CASE EVENT DATE: 20141018
